FAERS Safety Report 8499926-1 (Version None)
Quarter: 2012Q3

REPORT INFORMATION
  Report Type: 
  Country: None (occurrence: None)
  Receive Date: 20120710
  Receipt Date: 20120703
  Transmission Date: 20120928
  Serious: Yes (Hospitalization)
  Sender: FDA-Public Use
  Company Number: US-BAYER-2012-015871

PATIENT
  Age: 28 Year
  Sex: Female
  Weight: 91.156 kg

DRUGS (6)
  1. METRONIDAZOLE [Concomitant]
     Dosage: 250 MG, TID
     Route: 048
  2. YAZ [Suspect]
     Dosage: UNK
     Dates: start: 20080401, end: 20080601
  3. FLUCONAZOLE [Concomitant]
     Dosage: 150 MG, UNK
     Route: 048
  4. TERCONAZOLE [Concomitant]
     Dosage: USE FOR 3 CONSECUTIVE DAYS
  5. URSODIOL [Concomitant]
     Dosage: 300 MG, TID
     Route: 048
  6. MEPERIDINE HCL [Concomitant]
     Dosage: 50 MG, Q4HR
     Route: 048

REACTIONS (5)
  - CHOLECYSTITIS CHRONIC [None]
  - PAIN [None]
  - INJURY [None]
  - GALLBLADDER DISORDER [None]
  - PANCREATITIS [None]
